FAERS Safety Report 17474261 (Version 1)
Quarter: 2020Q1

REPORT INFORMATION
  Report Type: Report from Study
  Country: CO (occurrence: CO)
  Receive Date: 20200228
  Receipt Date: 20200228
  Transmission Date: 20200409
  Serious: Yes (Hospitalization)
  Sender: FDA-Public Use
  Company Number: CO-JNJFOC-20190729230

PATIENT
  Age: 63 Year
  Sex: Female
  Weight: 69 kg

DRUGS (3)
  1. SIMPONI [Suspect]
     Active Substance: GOLIMUMAB
     Route: 058
     Dates: start: 20181223
  2. SIMPONI [Suspect]
     Active Substance: GOLIMUMAB
     Indication: RHEUMATOID ARTHRITIS
     Route: 058
     Dates: end: 20180913
  3. ARAVA [Concomitant]
     Active Substance: LEFLUNOMIDE

REACTIONS (5)
  - Off label use [Unknown]
  - Immune system disorder [Not Recovered/Not Resolved]
  - Product administration error [Unknown]
  - Uterine prolapse [Recovered/Resolved]
  - Urinary tract infection [Recovered/Resolved]

NARRATIVE: CASE EVENT DATE: 20141216
